FAERS Safety Report 7991101-X (Version None)
Quarter: 2011Q4

REPORT INFORMATION
  Report Type: 
  Country: None (occurrence: None)
  Receive Date: 20111219
  Receipt Date: 20111214
  Transmission Date: 20120403
  Serious: Yes (Hospitalization, Other)
  Sender: FDA-Public Use
  Company Number: US-ROCHE-803021

PATIENT
  Sex: Female
  Weight: 52.21 kg

DRUGS (2)
  1. AMNESTEEM [Suspect]
     Indication: ACNE
     Dates: start: 20080501, end: 20080801
  2. ACCUTANE [Suspect]
     Indication: ACNE
     Route: 048
     Dates: start: 20021001, end: 20030401

REACTIONS (4)
  - EMOTIONAL DISTRESS [None]
  - CROHN'S DISEASE [None]
  - ANAL FISTULA [None]
  - DEPRESSION [None]
